FAERS Safety Report 6339018-0 (Version None)
Quarter: 2009Q3

REPORT INFORMATION
  Report Type: 
  Country: None (occurrence: None)
  Receive Date: 20090821
  Receipt Date: 20090708
  Transmission Date: 20100115
  Serious: No
  Sender: FDA-Public Use
  Company Number: 8042892

PATIENT
  Age: 47 Year
  Sex: Female
  Weight: 78 kg

DRUGS (8)
  1. CIMZIA [Suspect]
     Indication: CROHN'S DISEASE
     Dosage: 400 MG SC
     Route: 058
     Dates: start: 20081024
  2. OMEPRAZOLE [Suspect]
     Indication: GASTROOESOPHAGEAL REFLUX DISEASE
     Dosage: 40 MG 2/D PO
     Route: 048
     Dates: start: 20090122
  3. PREDNISONE [Concomitant]
  4. ASACOL [Concomitant]
  5. PAXIL [Concomitant]
  6. PRILOSEC [Concomitant]
  7. OVCON-50 [Concomitant]
  8. CLONAZEPAM [Concomitant]

REACTIONS (5)
  - CANDIDIASIS [None]
  - CROHN'S DISEASE [None]
  - DRUG EFFECT DECREASED [None]
  - PYREXIA [None]
  - URTICARIA [None]
